FAERS Safety Report 5174334-X (Version None)
Quarter: 2006Q4

REPORT INFORMATION
  Report Type: 
  Country: None (occurrence: None)
  Receive Date: 20061214
  Receipt Date: 20061204
  Transmission Date: 20070319
  Serious: Yes (Hospitalization, Other)
  Sender: FDA-Public Use
  Company Number: US-ELI_LILLY_AND_COMPANY-US200612000527

PATIENT
  Age: 64 Year
  Sex: Male
  Weight: 86.621 kg

DRUGS (8)
  1. ZYPREXA [Suspect]
     Indication: DEPRESSION
     Dosage: 15 MG, DAILY (1/D)
     Route: 048
     Dates: start: 20040101
  2. ZYPREXA [Interacting]
     Dosage: 10 MG, DAILY (1/D)
     Route: 048
     Dates: start: 20060101
  3. ZINC [Concomitant]
     Dosage: 1 UNK, DAILY (1/D)
     Route: 048
     Dates: start: 20050101, end: 20040918
  4. CENTRUM [Concomitant]
     Dosage: 1 UNK, DAILY (1/D)
     Route: 048
     Dates: start: 20040101
  5. TRILEPTAL [Concomitant]
     Dosage: 450 MG, 2/D
     Route: 048
     Dates: start: 20030101
  6. ZOLOFT [Concomitant]
     Indication: DEPRESSION
     Dosage: 100 MG, DAILY (1/D)
     Route: 048
     Dates: start: 20040101
  7. ZOLOFT [Concomitant]
     Dosage: 50 MG, DAILY (1/D)
     Route: 048
     Dates: start: 20060101
  8. NORVASC [Concomitant]
     Indication: HYPERTENSION
     Dosage: 5 MG, DAILY (1/D)
     Route: 048
     Dates: start: 20051107

REACTIONS (4)
  - CONFUSIONAL STATE [None]
  - COORDINATION ABNORMAL [None]
  - DRUG INTERACTION [None]
  - MENTAL STATUS CHANGES [None]
